FAERS Safety Report 7234666-8 (Version None)
Quarter: 2011Q1

REPORT INFORMATION
  Report Type: 
  Country: None (occurrence: None)
  Receive Date: 20110120
  Receipt Date: 20110110
  Transmission Date: 20110831
  Serious: No
  Sender: FDA-Public Use
  Company Number: US-BIOGENIDEC-2011BI001906

PATIENT
  Age: 48 Year
  Sex: Male

DRUGS (1)
  1. TYSABRI [Suspect]
     Indication: MULTIPLE SCLEROSIS
     Route: 042
     Dates: start: 20101105

REACTIONS (7)
  - EAR CONGESTION [None]
  - URTICARIA [None]
  - TREMOR [None]
  - THROAT TIGHTNESS [None]
  - CYANOSIS [None]
  - CHILLS [None]
  - HEART RATE DECREASED [None]
